FAERS Safety Report 11222782 (Version 1)
Quarter: 2015Q2

REPORT INFORMATION
  Report Type: Spontaneous
  Country: US (occurrence: US)
  Receive Date: 20150626
  Receipt Date: 20150626
  Transmission Date: 20150821
  Serious: Yes (Hospitalization)
  Sender: FDA-Public Use
  Company Number: US-PERRIGO-15US006204

PATIENT
  Age: 72 Year
  Sex: Female

DRUGS (2)
  1. ORLISTAT [Suspect]
     Active Substance: ORLISTAT
     Indication: PRODUCT USED FOR UNKNOWN INDICATION
     Dosage: UNKNOWN, UNKNOWN
     Route: 065
  2. IBUPROFEN 200 MG 604 [Suspect]
     Active Substance: IBUPROFEN
     Indication: PRODUCT USED FOR UNKNOWN INDICATION
     Dosage: UNKNOWN, UNKNOWN
     Route: 048

REACTIONS (3)
  - Acute hepatic failure [Unknown]
  - Hepatic encephalopathy [Unknown]
  - Jaundice [Unknown]
